FAERS Safety Report 10255326 (Version 1)
Quarter: 2014Q2

REPORT INFORMATION
  Report Type: Spontaneous
  Country: US (occurrence: US)
  Receive Date: 20140624
  Receipt Date: 20140624
  Transmission Date: 20141212
  Serious: No
  Sender: FDA-Public Use
  Company Number: US-PFIZER INC-2014168578

PATIENT
  Age: 79 Year
  Sex: Female
  Weight: 72.56 kg

DRUGS (2)
  1. ADVIL PM [Suspect]
     Indication: SLEEP DISORDER
     Dosage: [IBUPROFEN200MG]/ [DIPHENHYDRAMINE38MG] AS NEEDED
     Dates: end: 20140617
  2. ATENOLOL [Concomitant]
     Indication: HYPERTENSION
     Dosage: 50 MG, DAILY

REACTIONS (3)
  - Local swelling [Unknown]
  - Pruritus [Unknown]
  - Erythema [Unknown]
